FAERS Safety Report 5140368-4 (Version None)
Quarter: 2006Q4

REPORT INFORMATION
  Report Type: 
  Country: None (occurrence: None)
  Receive Date: 20061031
  Receipt Date: 20061026
  Transmission Date: 20070319
  Serious: Yes (Death, Hospitalization)
  Sender: FDA-Public Use
  Company Number: US-SANOFI-SYNTHELABO-A03200606459

PATIENT
  Age: 51 Year
  Sex: Male

DRUGS (4)
  1. ELOXATIN [Suspect]
     Indication: RECTAL CANCER
     Route: 042
  2. AVASTIN [Suspect]
     Indication: RECTAL CANCER
     Route: 042
  3. LEUCOVORIN CALCIUM [Suspect]
     Indication: RECTAL CANCER
     Route: 042
  4. FLUOROURACIL [Suspect]
     Indication: RECTAL CANCER
     Route: 042

REACTIONS (1)
  - PNEUMONIA [None]
